FAERS Safety Report 7379160-9 (Version None)
Quarter: 2011Q1

REPORT INFORMATION
  Report Type: 
  Country: None (occurrence: None)
  Receive Date: 20110328
  Receipt Date: 20110323
  Transmission Date: 20110831
  Serious: Yes (Death, Other)
  Sender: FDA-Public Use
  Company Number: PHHY2011BE15103

PATIENT
  Sex: Male

DRUGS (4)
  1. SANDIMMUNE [Suspect]
     Indication: HEART TRANSPLANT
     Dates: start: 19930101
  2. SUTENT [Concomitant]
  3. CERTICAN [Suspect]
     Indication: RENAL CELL CARCINOMA
     Dates: start: 20100101
  4. AFINITOR [Concomitant]

REACTIONS (5)
  - GENERAL PHYSICAL HEALTH DETERIORATION [None]
  - METASTASES TO LUNG [None]
  - RENAL CANCER METASTATIC [None]
  - RENAL FAILURE [None]
  - METASTASES TO BONE [None]
